FAERS Safety Report 25163043 (Version 5)
Quarter: 2025Q2

REPORT INFORMATION
  Report Type: Report from Study
  Country: ES (occurrence: ES)
  Receive Date: 20250404
  Receipt Date: 20250529
  Transmission Date: 20250716
  Serious: Yes (Hospitalization, Other)
  Sender: ABBVIE
  Company Number: ES-ABBVIE-6052392

PATIENT
  Age: 64 Year
  Sex: Male

DRUGS (1)
  1. FOSCARBIDOPA\FOSLEVODOPA [Suspect]
     Active Substance: FOSCARBIDOPA\FOSLEVODOPA
     Indication: Parkinson^s disease
     Route: 058
     Dates: start: 20240909

REACTIONS (22)
  - Myocardial infarction [Recovered/Resolved]
  - Catheter site pain [Recovered/Resolved]
  - Infusion site nodule [Recovered/Resolved]
  - Pain [Not Recovered/Not Resolved]
  - Puncture site pruritus [Recovered/Resolved]
  - Freezing phenomenon [Recovered/Resolved]
  - Administration site nodule [Recovered/Resolved]
  - Administration site pain [Recovered/Resolved]
  - Condition aggravated [Unknown]
  - Puncture site inflammation [Recovered/Resolved]
  - Administration site pain [Recovered/Resolved]
  - On and off phenomenon [Recovered/Resolved]
  - Puncture site pain [Recovered/Resolved]
  - Anxiety [Unknown]
  - Illness anxiety disorder [Not Recovered/Not Resolved]
  - Puncture site pain [Recovered/Resolved]
  - Puncture site pain [Recovered/Resolved]
  - Puncture site infection [Recovered/Resolved]
  - Speech disorder [Recovered/Resolved]
  - Freezing phenomenon [Recovered/Resolved]
  - Administration site pain [Recovered/Resolved]
  - Administration site pain [Recovered/Resolved]

NARRATIVE: CASE EVENT DATE: 20240101
